FAERS Safety Report 18758778 (Version 1)
Quarter: 2021Q1

REPORT INFORMATION
  Report Type: Other
  Country: US (occurrence: US)
  Receive Date: 20210119
  Receipt Date: 20210119
  Transmission Date: 20210419
  Serious: No
  Sender: FDA-Public Use
  Company Number: US-AMAG PHARMACEUTICALS, INC.-AMAG202003782

PATIENT
  Age: 27 Year
  Sex: Female
  Weight: 59.02 kg

DRUGS (1)
  1. MAKENA [Suspect]
     Active Substance: HYDROXYPROGESTERONE CAPROATE
     Indication: PREMATURE DELIVERY
     Route: 058
     Dates: start: 20200925, end: 20201008

REACTIONS (3)
  - Product administration error [Unknown]
  - Pain in extremity [Recovered/Resolved]
  - Therapy cessation [Unknown]
